FAERS Safety Report 9043241 (Version 1)
Quarter: 2013Q1

REPORT INFORMATION
  Report Type: Report from Study
  Country: US (occurrence: US)
  Receive Date: 20130129
  Receipt Date: 20130129
  Transmission Date: 20140127
  Serious: No
  Sender: FDA-Public Use
  Company Number: US-ABBOTT-12P-163-0908957-00

PATIENT
  Sex: Female

DRUGS (8)
  1. HUMIRA 40 MG/0.8 ML PEN [Suspect]
     Indication: RHEUMATOID ARTHRITIS
     Route: 058
     Dates: start: 2009
  2. SYNTHROID [Concomitant]
     Indication: HYPOTHYROIDISM
  3. AMBIEN [Concomitant]
     Indication: INSOMNIA
  4. ELMIRON [Concomitant]
     Indication: CYSTITIS NONINFECTIVE
  5. CALCIUM [Concomitant]
     Indication: MINERAL SUPPLEMENTATION
  6. MULTIVITAMIN [Concomitant]
     Indication: VITAMIN SUPPLEMENTATION
  7. VICODIN [Concomitant]
     Indication: PAIN
  8. VICODIN [Concomitant]
     Indication: RHEUMATOID ARTHRITIS

REACTIONS (2)
  - Oropharyngeal discomfort [Not Recovered/Not Resolved]
  - Sinusitis [Unknown]
